FAERS Safety Report 25188026 (Version 1)
Quarter: 2025Q2

REPORT INFORMATION
  Report Type: Spontaneous
  Country: US (occurrence: US)
  Receive Date: 20250411
  Receipt Date: 20250411
  Transmission Date: 20250716
  Serious: No
  Sender: KINIKSA PHARMACEUTICALS
  Company Number: US-Kiniksa Pharmaceuticals Ltd.-2025KPU000895

PATIENT
  Sex: Female

DRUGS (1)
  1. ARCALYST [Suspect]
     Active Substance: RILONACEPT
     Indication: Product used for unknown indication
     Route: 058

REACTIONS (11)
  - Vertigo [Recovering/Resolving]
  - Gait disturbance [Recovering/Resolving]
  - Brain fog [Recovered/Resolved]
  - Head discomfort [Unknown]
  - Visual impairment [Unknown]
  - Dizziness [Recovering/Resolving]
  - Impaired work ability [Unknown]
  - Nausea [Recovering/Resolving]
  - Product complaint [Unknown]
  - Therapy cessation [Unknown]
  - Fatigue [Unknown]

NARRATIVE: CASE EVENT DATE: 20250217
